FAERS Safety Report 23799107 (Version 1)
Quarter: 2024Q2

REPORT INFORMATION
  Report Type: Spontaneous
  Country: US (occurrence: US)
  Receive Date: 20240430
  Receipt Date: 20240430
  Transmission Date: 20240716
  Serious: Yes (Life-Threatening, Hospitalization)
  Sender: FDA-Public Use
  Company Number: US-MYLANLABS-2024M1037516

PATIENT
  Age: 45 Year
  Sex: Male

DRUGS (1)
  1. CLOZAPINE [Suspect]
     Active Substance: CLOZAPINE
     Indication: Schizophrenia
     Dosage: UNK; THE PATIENT HAD BEEN RECEIVING THIS DRUG AS A HIGH DOSE
     Route: 065

REACTIONS (3)
  - Aspiration [Recovered/Resolved]
  - Gastrointestinal hypomotility [Recovering/Resolving]
  - Drug ineffective [Unknown]
